FAERS Safety Report 17597247 (Version 1)
Quarter: 2020Q1

REPORT INFORMATION
  Report Type: Report from Study
  Country: GB (occurrence: GB)
  Receive Date: 20200330
  Receipt Date: 20200330
  Transmission Date: 20200409
  Serious: Yes (Hospitalization)
  Sender: FDA-Public Use
  Company Number: GB-ROCHE-2571866

PATIENT
  Age: 34 Year
  Sex: Female

DRUGS (1)
  1. ROACTEMRA [Suspect]
     Active Substance: TOCILIZUMAB
     Indication: RHEUMATOID ARTHRITIS
     Route: 058

REACTIONS (4)
  - Seizure [Unknown]
  - Epilepsy [Unknown]
  - Viral infection [Unknown]
  - Encephalitis [Unknown]

NARRATIVE: CASE EVENT DATE: 20200310
